FAERS Safety Report 5832213-6 (Version None)
Quarter: 2008Q3

REPORT INFORMATION
  Report Type: 
  Country: None (occurrence: None)
  Receive Date: 20080804
  Receipt Date: 20080525
  Transmission Date: 20090109
  Serious: Yes (Hospitalization)
  Sender: FDA-Public Use
  Company Number: JP-NOVOPROD-261740

PATIENT
  Age: 16 Year
  Sex: Female
  Weight: 46 kg

DRUGS (10)
  1. NORDITROPIN [Suspect]
     Indication: GROWTH HORMONE DEFICIENCY
     Dosage: 4.1 MG, QW
     Route: 058
     Dates: start: 20010123, end: 20021217
  2. NORDITROPIN [Suspect]
     Dosage: 4.9 MG, QW
     Dates: start: 20021218, end: 20041019
  3. NORDITROPIN [Suspect]
     Dosage: 5.2 MG, QW
     Dates: start: 20041020, end: 20050301
  4. NORDITROPIN [Suspect]
     Dosage: 5.3 MG, QW
     Dates: start: 20050302, end: 20060401
  5. DESMOPRESSIN                       /00361902/ [Concomitant]
     Dosage: 2.5 UG, QD
     Dates: start: 20000828
  6. LEVOTHYROXINE SODIUM [Concomitant]
     Dosage: 50 UG, QD
     Route: 048
     Dates: start: 20041005
  7. CORTRIL [Concomitant]
     Dosage: 10 MG, QD
     Route: 048
     Dates: start: 20041005
  8. ESTRADERM [Concomitant]
     Dosage: 0.18MG - 0.36MG, QD
     Dates: start: 20050914
  9. PREMARIN [Concomitant]
     Dosage: 1.25 MG, QD
     Dates: start: 20060601, end: 20060101
  10. PROVERA [Concomitant]
     Dosage: 5 MG, UNK
     Route: 048
     Dates: start: 20060510, end: 20060712

REACTIONS (1)
  - GERM CELL CANCER [None]
